FAERS Safety Report 12574328 (Version 1)
Quarter: 2016Q3

REPORT INFORMATION
  Report Type: Spontaneous
  Country: GB (occurrence: GB)
  Receive Date: 20160720
  Receipt Date: 20160720
  Transmission Date: 20161109
  Serious: Yes (Life-Threatening, Hospitalization, Other)
  Sender: FDA-Public Use
  Company Number: GB-TEVA-676645ACC

PATIENT
  Age: 74 Year
  Sex: Female

DRUGS (7)
  1. FERROUS FUMARATE [Concomitant]
     Active Substance: FERROUS FUMARATE
     Dosage: 3 DOSAGE FORMS DAILY;
  2. TRIMETHOPRIM. [Suspect]
     Active Substance: TRIMETHOPRIM
     Indication: URINARY TRACT INFECTION
     Dosage: 200 MILLIGRAM DAILY;
     Route: 048
     Dates: start: 20160518
  3. FLUOXETINE [Concomitant]
     Active Substance: FLUOXETINE HYDROCHLORIDE
     Dosage: 20 MILLIGRAM DAILY;
  4. PHENYTOIN. [Interacting]
     Active Substance: PHENYTOIN
     Indication: EPILEPSY
     Route: 048
  5. SOLIFENACIN [Concomitant]
     Active Substance: SOLIFENACIN
  6. SIMVASTATIN. [Concomitant]
     Active Substance: SIMVASTATIN
  7. PIVMECILLINAM [Concomitant]
     Active Substance: PENICILLIN
     Indication: URINARY TRACT INFECTION

REACTIONS (8)
  - Somnolence [Recovering/Resolving]
  - Toxicity to various agents [Recovered/Resolved]
  - Drug interaction [Unknown]
  - Malaise [Recovering/Resolving]
  - Confusional state [Recovering/Resolving]
  - Hypophagia [Recovering/Resolving]
  - Incorrect dose administered [Unknown]
  - Generalised tonic-clonic seizure [Recovered/Resolved]

NARRATIVE: CASE EVENT DATE: 20160531
